FAERS Safety Report 7391932-3 (Version None)
Quarter: 2011Q2

REPORT INFORMATION
  Report Type: 
  Country: None (occurrence: None)
  Receive Date: 20110404
  Receipt Date: 20110328
  Transmission Date: 20111010
  Serious: Yes (Other)
  Sender: FDA-Public Use
  Company Number: DE-BAXTER-2011BH006578

PATIENT
  Age: 74 Year
  Sex: Female
  Weight: 84 kg

DRUGS (3)
  1. DIANEAL [Suspect]
     Indication: PERITONEAL DIALYSIS
     Route: 033
     Dates: start: 20110313
  2. EXTRANEAL [Concomitant]
     Indication: PRODUCT USED FOR UNKNOWN INDICATION
     Route: 033
  3. DIANEAL [Suspect]
     Route: 033

REACTIONS (4)
  - NAUSEA [None]
  - ASTHENIA [None]
  - DIZZINESS [None]
  - MALAISE [None]
